FAERS Safety Report 25527044 (Version 1)
Quarter: 2025Q3

REPORT INFORMATION
  Report Type: Report from Study
  Country: EU (occurrence: EU)
  Receive Date: 20250708
  Receipt Date: 20250708
  Transmission Date: 20251020
  Serious: Yes (Hospitalization, Other)
  Sender: ABBVIE
  Company Number: EU-ABBVIE-6353474

PATIENT
  Age: 46 Year
  Sex: Female

DRUGS (2)
  1. HUMIRA [Suspect]
     Active Substance: ADALIMUMAB
     Indication: Psoriatic arthropathy
     Route: 058
     Dates: start: 20231030, end: 20241125
  2. ENOXAPARIN SODIUM [Concomitant]
     Active Substance: ENOXAPARIN SODIUM
     Indication: Product used for unknown indication

REACTIONS (9)
  - Pulmonary embolism [Recovered/Resolved]
  - Guttate psoriasis [Unknown]
  - Erythema [Unknown]
  - Cutaneous vasculitis [Recovered/Resolved]
  - Peripheral swelling [Recovered/Resolved]
  - Nodule [Recovered/Resolved]
  - Arthralgia [Unknown]
  - Vasculitis [Recovered/Resolved]
  - Lipoma [Unknown]

NARRATIVE: CASE EVENT DATE: 20240201
